FAERS Safety Report 14252374 (Version 2)
Quarter: 2017Q4

REPORT INFORMATION
  Report Type: Report from Study
  Country: BR (occurrence: BR)
  Receive Date: 20171205
  Receipt Date: 20171215
  Transmission Date: 20180321
  Serious: Yes (Death, Hospitalization)
  Sender: FDA-Public Use
  Company Number: PHHY2017BR178797

PATIENT
  Sex: Female
  Weight: 63 kg

DRUGS (2)
  1. EXELON PATCH [Suspect]
     Active Substance: RIVASTIGMINE
     Indication: MEMORY IMPAIRMENT
     Dosage: 4.6 MG, QD (PATCH 5 CM2)
     Route: 062
  2. ACLASTA [Suspect]
     Active Substance: ZOLEDRONIC ACID
     Indication: OSTEOPOROSIS
     Dosage: 1 DF (5MG/100ML), Q12MO
     Route: 042

REACTIONS (7)
  - Nodule [Unknown]
  - Drowning [Unknown]
  - Drug ineffective [Unknown]
  - Pain [Unknown]
  - Pruritus [Unknown]
  - Polyp [Fatal]
  - Aspiration [Unknown]
